FAERS Safety Report 19105393 (Version 3)
Quarter: 2021Q2

REPORT INFORMATION
  Report Type: Spontaneous
  Country: FR (occurrence: FR)
  Receive Date: 20210407
  Receipt Date: 20210526
  Transmission Date: 20210717
  Serious: Yes (Hospitalization)
  Sender: FDA-Public Use
  Company Number: FR-BAYER-2021-118877

PATIENT
  Age: 40 Year
  Sex: Female
  Weight: 93 kg

DRUGS (6)
  1. HEPARIN [Concomitant]
     Active Substance: HEPARIN SODIUM
     Indication: PRODUCT USED FOR UNKNOWN INDICATION
     Dosage: 40 000 UI
     Route: 065
  2. SUFENTANIL [Concomitant]
     Active Substance: SUFENTANIL
     Indication: PRODUCT USED FOR UNKNOWN INDICATION
     Dosage: UNK
     Route: 065
  3. PROPOFOL. [Concomitant]
     Active Substance: PROPOFOL
     Indication: PRODUCT USED FOR UNKNOWN INDICATION
     Dosage: UNK
     Route: 065
  4. EXACYL [Concomitant]
     Active Substance: TRANEXAMIC ACID
     Indication: AORTIC SURGERY
     Dosage: 1 GRAM EVERY 1 DAY(S)
     Route: 042
     Dates: start: 20210319, end: 20210319
  5. APROTININ [Suspect]
     Active Substance: APROTININ
     Indication: AORTIC SURGERY
     Dosage: 4500000 INTERNATIONAL UNIT LOADING DOSE 1 MILLION IU PUMP PRIMING DOSE 1 MILLION IU MAINTENANCE DOSE
     Route: 042
     Dates: start: 20210319, end: 20210319
  6. RIASTAP [Concomitant]
     Active Substance: FIBRINOGEN HUMAN
     Indication: AORTIC SURGERY
     Dosage: 2 GRAM EVERY 1 DAY(S)
     Route: 042
     Dates: start: 20210319, end: 20210319

REACTIONS (3)
  - Off label use [Unknown]
  - Product use in unapproved indication [Unknown]
  - Cerebral infarction [Recovered/Resolved with Sequelae]

NARRATIVE: CASE EVENT DATE: 20210319
